FAERS Safety Report 6899971-3 (Version None)
Quarter: 2010Q3

REPORT INFORMATION
  Report Type: 
  Country: None (occurrence: None)
  Receive Date: 20100708
  Receipt Date: 20090827
  Transmission Date: 20110219
  Serious: Yes (Other)
  Sender: FDA-Public Use
  Company Number: 2009263191

PATIENT
  Age: 37 Year
  Sex: Female
  Weight: 71.7 kg

DRUGS (1)
  1. CHANTIX [Suspect]
     Indication: SMOKING CESSATION THERAPY
     Dosage: FREQUENCY: 2X/DAY,, ORAL
     Route: 048
     Dates: start: 20090801

REACTIONS (4)
  - DIZZINESS [None]
  - HYPERHIDROSIS [None]
  - JOINT SPRAIN [None]
  - LOSS OF CONSCIOUSNESS [None]
